FAERS Safety Report 4315162-4 (Version None)
Quarter: 2004Q1

REPORT INFORMATION
  Report Type: 
  Country: None (occurrence: None)
  Receive Date: 20040310
  Receipt Date: 20040224
  Transmission Date: 20041129
  Serious: Yes (Death, Hospitalization, Other)
  Sender: FDA-Public Use
  Company Number: US-BRISTOL-MYERS SQUIBB COMPANY-12515821

PATIENT
  Age: 47 Year
  Sex: Female

DRUGS (5)
  1. ABILIFY [Suspect]
     Indication: BIPOLAR DISORDER
     Dosage: STARTED DOSING ABOUT 3 MONTHS AGO
     Route: 048
  2. SERZONE [Interacting]
     Dates: start: 20040217, end: 20040219
  3. DEPAKOTE [Interacting]
  4. XANAX [Concomitant]
     Dosage: IN AM FOR YEARS
  5. SEROQUEL [Concomitant]
     Dates: end: 20040218

REACTIONS (12)
  - BLOOD GLUCOSE INCREASED [None]
  - CARDIAC FAILURE [None]
  - CARDIOGENIC SHOCK [None]
  - DIABETIC KETOACIDOSIS [None]
  - DRUG INTERACTION [None]
  - FATIGUE [None]
  - HYPOVOLAEMIC SHOCK [None]
  - MULTI-ORGAN FAILURE [None]
  - MUSCLE FATIGUE [None]
  - PANCREATITIS NECROTISING [None]
  - RENAL FAILURE [None]
  - SEPSIS [None]
